FAERS Safety Report 10246977 (Version 1)
Quarter: 2014Q2

REPORT INFORMATION
  Report Type: Spontaneous
  Country: US (occurrence: None)
  Receive Date: 20140617
  Receipt Date: 20140617
  Transmission Date: 20141212
  Serious: Yes (Other)
  Sender: FDA-Public Use
  Company Number: None

PATIENT
  Age: 60 Year
  Sex: Male

DRUGS (1)
  1. AFINITOR [Suspect]
     Indication: RENAL CANCER
     Route: 048
     Dates: start: 20130913, end: 20140616

REACTIONS (8)
  - Fall [None]
  - Dyspnoea [None]
  - Circumoral oedema [None]
  - Stomatitis [None]
  - Contusion [None]
  - Joint swelling [None]
  - Decreased appetite [None]
  - Oedema peripheral [None]
